FAERS Safety Report 12309398 (Version 1)
Quarter: 2016Q2

REPORT INFORMATION
  Report Type: Spontaneous
  Country: US (occurrence: None)
  Receive Date: 20160426
  Receipt Date: 20160426
  Transmission Date: 20160815
  Serious: No
  Sender: FDA-Public Use
  Company Number: None

PATIENT
  Age: 60 Year
  Sex: Male
  Weight: 90.72 kg

DRUGS (6)
  1. FLUTICASONE [Concomitant]
     Active Substance: FLUTICASONE\FLUTICASONE PROPIONATE
  2. CPAP MACHINE [Concomitant]
  3. GARLIC. [Concomitant]
     Active Substance: GARLIC
  4. MULTI VITAMINS [Concomitant]
  5. DULERA [Suspect]
     Active Substance: FORMOTEROL FUMARATE DIHYDRATE\MOMETASONE FUROATE
     Indication: ASTHMA
     Dosage: 2 PUFF(S) EVERY 12 HOURS INHALATION
     Route: 055
     Dates: start: 20160412, end: 20160422
  6. SINGULAIR [Concomitant]
     Active Substance: MONTELUKAST SODIUM

REACTIONS (1)
  - Diplopia [None]

NARRATIVE: CASE EVENT DATE: 20160413
